FAERS Safety Report 21059418 (Version 1)
Quarter: 2022Q3

REPORT INFORMATION
  Report Type: Spontaneous
  Country: US (occurrence: None)
  Receive Date: 20220708
  Receipt Date: 20220708
  Transmission Date: 20221027
  Serious: No
  Sender: FDA-Public Use
  Company Number: None

PATIENT
  Sex: Female

DRUGS (8)
  1. CAPECITABINE [Suspect]
     Active Substance: CAPECITABINE
     Indication: Breast cancer female
     Route: 048
     Dates: start: 20210721
  2. ALPRAZOLAM [Concomitant]
  3. CAPECITABINE [Concomitant]
     Active Substance: CAPECITABINE
  4. CYCLOBENZAPRINE [Concomitant]
     Active Substance: CYCLOBENZAPRINE
  5. ETODOLAC TAB [Concomitant]
  6. METHOCARBAM TAB [Concomitant]
  7. OXYCODONE AND ACETAMINOPHEN [Concomitant]
     Active Substance: ACETAMINOPHEN\OXYCODONE HYDROCHLORIDE
  8. OXYCODONE [Concomitant]
     Active Substance: OXYCODONE

REACTIONS (2)
  - Surgery [None]
  - Therapy interrupted [None]
